FAERS Safety Report 16764076 (Version 3)
Quarter: 2020Q2

REPORT INFORMATION
  Report Type: Report from Study
  Country: US (occurrence: US)
  Receive Date: 20190902
  Receipt Date: 20200615
  Transmission Date: 20200713
  Serious: Yes (Hospitalization)
  Sender: FDA-Public Use
  Company Number: PHEH2019US036389

PATIENT
  Sex: Female
  Weight: 80.27 kg

DRUGS (5)
  1. AMBRISENTAN [Concomitant]
     Active Substance: AMBRISENTAN
     Indication: PRODUCT USED FOR UNKNOWN INDICATION
     Dosage: UNK
     Route: 065
  2. TREPROSTINIL. [Suspect]
     Active Substance: TREPROSTINIL
     Indication: PULMONARY ARTERIAL HYPERTENSION
     Dosage: 74 NG/KG/MIN, CONTINUOUS
     Route: 042
     Dates: start: 20190617
  3. TREPROSTINIL. [Suspect]
     Active Substance: TREPROSTINIL
     Dosage: 74 NG/KG/MIN, CONTINUOUS
     Route: 042
     Dates: start: 20190617
  4. TADALAFIL. [Concomitant]
     Active Substance: TADALAFIL
     Indication: PRODUCT USED FOR UNKNOWN INDICATION
     Dosage: UNK
     Route: 065
  5. TREPROSTINIL. [Suspect]
     Active Substance: TREPROSTINIL
     Dosage: UNK (74 NG/KG/MIN, CONTINUOUS)
     Route: 042
     Dates: start: 20200514

REACTIONS (4)
  - Dyspnoea [Unknown]
  - Pruritus [Unknown]
  - Emotional disorder [Unknown]
  - Headache [Unknown]
